FAERS Safety Report 8282977-X (Version None)
Quarter: 2012Q2

REPORT INFORMATION
  Report Type: 
  Country: None (occurrence: None)
  Receive Date: 20120413
  Receipt Date: 20120329
  Transmission Date: 20120825
  Serious: Yes (Death, Hospitalization)
  Sender: FDA-Public Use
  Company Number: JP-ROCHE-GNE320364

PATIENT
  Age: 66 Year
  Sex: Female

DRUGS (11)
  1. ALOSENN [Concomitant]
     Route: 048
     Dates: start: 20110216
  2. EDARAVONE [Suspect]
     Dosage: 30 MG, UNK
     Route: 041
     Dates: start: 20110220, end: 20110220
  3. ASPIRIN [Suspect]
     Indication: THROMBOTIC CEREBRAL INFARCTION
     Route: 048
     Dates: end: 20110217
  4. INSULIN [Concomitant]
     Indication: PRODUCT USED FOR UNKNOWN INDICATION
     Route: 051
  5. ALTEPLASE [Suspect]
     Indication: CEREBRAL INFARCTION
     Dosage: 30.2 ML, UNK
     Route: 042
     Dates: start: 20110210, end: 20110210
  6. HEPARIN SODIUM [Concomitant]
     Indication: PRODUCT USED FOR UNKNOWN INDICATION
     Dosage: UNK
     Route: 041
     Dates: start: 20110211, end: 20110214
  7. BASEN [Concomitant]
     Route: 048
     Dates: start: 20110216, end: 20110226
  8. EDARAVONE [Suspect]
     Indication: THROMBOTIC CEREBRAL INFARCTION
     Dosage: 60 MG, UNK
     Route: 041
     Dates: end: 20110219
  9. ASPIRIN [Concomitant]
     Route: 048
     Dates: start: 20110211, end: 20110211
  10. ASPIRIN [Concomitant]
     Route: 048
     Dates: end: 20110226
  11. LANTUS [Concomitant]
     Route: 051
     Dates: start: 20110225, end: 20110226

REACTIONS (6)
  - SEPSIS [None]
  - RASH [None]
  - DISSEMINATED INTRAVASCULAR COAGULATION [None]
  - MULTI-ORGAN FAILURE [None]
  - PYREXIA [None]
  - URINARY TRACT INFECTION [None]
